FAERS Safety Report 9084226 (Version 2)
Quarter: 2013Q1

REPORT INFORMATION
  Report Type: Spontaneous
  Country: CA (occurrence: CA)
  Receive Date: 20130131
  Receipt Date: 20130326
  Transmission Date: 20140127
  Serious: Yes (Other)
  Sender: FDA-Public Use
  Company Number: CA-ABBOTT-13P-028-1043429-00

PATIENT
  Age: 24 Year
  Sex: Female

DRUGS (4)
  1. BIAXIN XL [Suspect]
     Indication: PHARYNGITIS
     Route: 048
     Dates: start: 20120328
  2. ADVIL COLD AND SINUS [Suspect]
     Indication: PRODUCT USED FOR UNKNOWN INDICATION
  3. CELEXA [Concomitant]
     Indication: PRODUCT USED FOR UNKNOWN INDICATION
     Route: 048
  4. LOSEC [Concomitant]
     Indication: PRODUCT USED FOR UNKNOWN INDICATION
     Route: 048

REACTIONS (3)
  - Ear congestion [Unknown]
  - Deafness [Unknown]
  - Ear pain [Unknown]
